FAERS Safety Report 9835954 (Version 1)
Quarter: 2014Q1

REPORT INFORMATION
  Report Type: Spontaneous
  Country: US (occurrence: US)
  Receive Date: 20140122
  Receipt Date: 20140122
  Transmission Date: 20141002
  Serious: Yes (Hospitalization, Other)
  Sender: FDA-Public Use
  Company Number: US-GILEAD-2014-0092702

PATIENT
  Sex: Female

DRUGS (5)
  1. LETAIRIS [Suspect]
     Indication: PRODUCT USED FOR UNKNOWN INDICATION
     Dosage: 5 MG, UNK
     Route: 065
     Dates: start: 20120906
  2. ADCIRCA [Concomitant]
     Dosage: 20 MG, UNK
  3. ADVAIR [Concomitant]
  4. LASIX                              /00032601/ [Concomitant]
     Dosage: 20 MG, UNK
  5. LEVOTHYROXINE [Concomitant]
     Dosage: 125 ?G, UNK

REACTIONS (1)
  - Cardiac failure congestive [Recovering/Resolving]
